FAERS Safety Report 7605117-6 (Version None)
Quarter: 2011Q3

REPORT INFORMATION
  Report Type: 
  Country: None (occurrence: None)
  Receive Date: 20110713
  Receipt Date: 20110125
  Transmission Date: 20111222
  Serious: Yes (Death, Other)
  Sender: FDA-Public Use
  Company Number: US-BAYER-200939922NA

PATIENT
  Age: 64 Year
  Sex: Male
  Weight: 90.249 kg

DRUGS (7)
  1. LASIX [Concomitant]
  2. VICODIN [Concomitant]
     Dosage: 5/500 MG, EVERY 4 TO 6 HOURS AS NEEDED.
     Route: 048
  3. PREDNISONE [Concomitant]
     Dosage: 10 MG, BID
  4. HEPARIN [Concomitant]
  5. TRASYLOL [Suspect]
     Indication: CORONARY ARTERY BYPASS
     Dosage: 200ML, THEN 25 ML/HR
     Route: 042
     Dates: start: 20040227, end: 20040227
  6. ATENOLOL [Concomitant]
     Dosage: 25 MG, QD
     Route: 048
  7. ACETYLSALICYLIC ACID SRT [Concomitant]
     Dosage: 81 MG, QD
     Route: 048

REACTIONS (12)
  - EMOTIONAL DISTRESS [None]
  - PAIN [None]
  - STRESS [None]
  - UNEVALUABLE EVENT [None]
  - RENAL FAILURE [None]
  - ANHEDONIA [None]
  - ANXIETY [None]
  - INJURY [None]
  - DEATH [None]
  - FEAR [None]
  - RENAL IMPAIRMENT [None]
  - RENAL INJURY [None]
